FAERS Safety Report 10689149 (Version 2)
Quarter: 2015Q1

REPORT INFORMATION
  Report Type: Spontaneous
  Country: IT (occurrence: IT)
  Receive Date: 20150105
  Receipt Date: 20150326
  Transmission Date: 20150720
  Serious: Yes (Hospitalization)
  Sender: FDA-Public Use
  Company Number: IT-ROCHE-1516264

PATIENT
  Age: 48 Year
  Sex: Female

DRUGS (5)
  1. MODITEN [Concomitant]
     Active Substance: FLUPHENAZINE HYDROCHLORIDE
     Dosage: 25 MG/1 ML PROLONGED RELEASE SOLUTION FOR INJECTION
     Route: 030
  2. METHADONE HYDROCHLORIDE. [Concomitant]
     Active Substance: METHADONE HYDROCHLORIDE
     Route: 065
  3. EN [Concomitant]
     Active Substance: DELORAZEPAM
     Dosage: 1 MG/ML ORAL DROPS, SOLUTION
     Route: 048
  4. RIVOTRIL [Suspect]
     Active Substance: CLONAZEPAM
     Indication: PRODUCT USED FOR UNKNOWN INDICATION
     Dosage: ^2 MG TABLETS^ 20 TABLETS
     Route: 048
     Dates: start: 20141224, end: 20141224
  5. ENTUMIN [Concomitant]
     Active Substance: CLOTHIAPINE
     Dosage: 100 MG/ML ORAL DROPS SOLUTION
     Route: 048

REACTIONS (4)
  - Bradykinesia [Recovered/Resolved]
  - Sopor [Recovered/Resolved]
  - Bradyphrenia [Recovered/Resolved]
  - Drug abuse [Unknown]

NARRATIVE: CASE EVENT DATE: 20141224
